FAERS Safety Report 26084558 (Version 1)
Quarter: 2025Q4

REPORT INFORMATION
  Report Type: Spontaneous
  Country: JP (occurrence: JP)
  Receive Date: 20251124
  Receipt Date: 20251124
  Transmission Date: 20260118
  Serious: Yes (Other)
  Sender: ASTELLAS
  Company Number: JP-ASTELLAS-2025-AER-008034

PATIENT
  Age: 7 Decade
  Sex: Male
  Weight: 64 kg

DRUGS (8)
  1. VYLOY [Suspect]
     Active Substance: ZOLBETUXIMAB-CLZB
     Indication: Gastric cancer
     Route: 042
     Dates: start: 20250207, end: 20250207
  2. VYLOY [Suspect]
     Active Substance: ZOLBETUXIMAB-CLZB
     Indication: Oesophageal carcinoma
     Route: 042
     Dates: start: 20250303, end: 20251014
  3. CAPECITABINE [Concomitant]
     Active Substance: CAPECITABINE
     Indication: Gastric cancer
     Route: 065
     Dates: start: 20250207
  4. CAPECITABINE [Concomitant]
     Active Substance: CAPECITABINE
     Indication: Oesophageal carcinoma
  5. OXALIPLATIN [Concomitant]
     Active Substance: OXALIPLATIN
     Indication: Gastric cancer
     Route: 065
     Dates: start: 20250207
  6. OXALIPLATIN [Concomitant]
     Active Substance: OXALIPLATIN
     Indication: Oesophageal carcinoma
     Route: 065
     Dates: start: 20250303
  7. PRIMPERAN [Concomitant]
     Active Substance: METOCLOPRAMIDE HYDROCHLORIDE
     Indication: Nausea
     Route: 065
     Dates: start: 20250207
  8. PRIMPERAN [Concomitant]
     Active Substance: METOCLOPRAMIDE HYDROCHLORIDE
     Route: 065
     Dates: start: 20250303

REACTIONS (3)
  - Malignant neoplasm progression [Not Recovered/Not Resolved]
  - Nausea [Recovered/Resolved]
  - Nausea [Recovering/Resolving]

NARRATIVE: CASE EVENT DATE: 20250207
